FAERS Safety Report 7884410-6 (Version None)
Quarter: 2011Q4

REPORT INFORMATION
  Report Type: 
  Country: None (occurrence: None)
  Receive Date: 20111102
  Receipt Date: 20110818
  Transmission Date: 20120403
  Serious: No
  Sender: FDA-Public Use
  Company Number: US-ASTRAZENECA-2011SE49689

PATIENT
  Age: 63 Year
  Sex: Female

DRUGS (7)
  1. HYDROCHLOROTHIAZIDE [Concomitant]
  2. NORVASC [Concomitant]
  3. CARAFATE [Concomitant]
  4. LYRICA [Concomitant]
  5. VANDETANIB [Suspect]
     Indication: THYROID CANCER
     Route: 048
  6. TRAZODONE HYDROCHLORIDE [Concomitant]
  7. CELEXA [Concomitant]

REACTIONS (2)
  - FALL [None]
  - BLOOD PRESSURE DIASTOLIC INCREASED [None]
